FAERS Safety Report 15163771 (Version 1)
Quarter: 2018Q3

REPORT INFORMATION
  Report Type: Report from Study
  Country: IT (occurrence: IT)
  Receive Date: 20180719
  Receipt Date: 20180719
  Transmission Date: 20181010
  Serious: Yes (Other)
  Sender: FDA-Public Use
  Company Number: IT-TEVA-2018-IT-929026

PATIENT
  Age: 63 Year
  Sex: Male

DRUGS (3)
  1. FLUIMUCIL [Suspect]
     Active Substance: ACETYLCYSTEINE
     Dosage: 600 MILLIGRAM DAILY;
     Route: 048
     Dates: start: 20180524
  2. AMOXICILLINA TRIIDRATA/POTASSIO CLAVULANATO [Suspect]
     Active Substance: AMOXICILLIN\CLAVULANATE POTASSIUM
     Dosage: 2 DOSAGE FORMS DAILY;
     Route: 048
     Dates: start: 20180524
  3. FOSTER [Suspect]
     Active Substance: BECLOMETHASONE\FORMOTEROL
     Dosage: 100/6 MICROGRAMS TO DISPENSE PRESSURIZED SOLUTION FOR IN
     Dates: start: 20180524

REACTIONS (2)
  - Hypersensitivity [Recovering/Resolving]
  - Face oedema [Recovering/Resolving]

NARRATIVE: CASE EVENT DATE: 20180526
